FAERS Safety Report 8523997-7 (Version None)
Quarter: 2012Q2

REPORT INFORMATION
  Report Type: 
  Country: None (occurrence: None)
  Receive Date: 20120406
  Receipt Date: 20111229
  Transmission Date: 20120825
  Serious: Yes (Hospitalization)
  Sender: FDA-Public Use
  Company Number: US-CYPR-2011-000066

PATIENT
  Sex: Male
  Weight: 96.1626 kg

DRUGS (8)
  1. METOPROLOL SUCCINATE [Concomitant]
  2. ASPIRIN [Suspect]
     Indication: CORONARY ARTERY DISEASE
     Dosage: (325 MG QD ORAL)
     Route: 048
  3. .. [Concomitant]
  4. CLOPIDOGREL [Suspect]
     Indication: CORONARY ARTERY DISEASE
     Dosage: (75 MG BID ORAL) ; (75 MG QD ORAL)
     Route: 048
     Dates: start: 20100507, end: 20100514
  5. CLOPIDOGREL [Suspect]
     Indication: CORONARY ARTERY DISEASE
     Dosage: (75 MG BID ORAL) ; (75 MG QD ORAL)
     Route: 048
     Dates: start: 20100515, end: 20110909
  6. COZAAR [Concomitant]
  7. CYPHER STENT [Concomitant]
  8. CRESTOR [Concomitant]

REACTIONS (1)
  - ANGINA UNSTABLE [None]
